FAERS Safety Report 11716357 (Version 2)
Quarter: 2015Q4

REPORT INFORMATION
  Report Type: Spontaneous
  Country: US (occurrence: US)
  Receive Date: 20151104
  Receipt Date: 20151110
  Transmission Date: 20160304
  Serious: No
  Sender: FDA-Public Use
  Company Number: US-ELI_LILLY_AND_COMPANY-US201107001995

PATIENT
  Sex: Female
  Weight: 55 kg

DRUGS (10)
  1. FORTEO [Suspect]
     Active Substance: TERIPARATIDE
     Dosage: 20 UG, QD
     Route: 058
  2. FORTEO [Suspect]
     Active Substance: TERIPARATIDE
     Dosage: 20 UG, QD
     Route: 058
     Dates: end: 20120410
  3. FOLIC ACID. [Concomitant]
     Active Substance: FOLIC ACID
     Dosage: 1 MG, WEEKLY (1/W)
  4. VITAMIN D [Concomitant]
     Active Substance: CHOLECALCIFEROL
     Dosage: 1000 IU, UNK
  5. HUMIRA [Concomitant]
     Active Substance: ADALIMUMAB
     Dosage: 40 MG, 2/M
  6. METOPROLOL [Concomitant]
     Active Substance: METOPROLOL
     Dosage: 25 MG, QD
  7. VITAMIN C [Concomitant]
     Active Substance: ASCORBIC ACID
  8. AVAMYS [Concomitant]
     Active Substance: FLUTICASONE FUROATE
  9. FORTEO [Suspect]
     Active Substance: TERIPARATIDE
     Indication: OSTEOPOROSIS
     Dosage: 20 UG, QD
     Route: 058
     Dates: start: 20111118
  10. LOVASTATIN. [Concomitant]
     Active Substance: LOVASTATIN

REACTIONS (8)
  - Abdominal pain [Unknown]
  - Drug dose omission [Unknown]
  - Hyperthyroidism [Recovered/Resolved]
  - Back pain [Unknown]
  - Musculoskeletal stiffness [Unknown]
  - Renal tubular disorder [Unknown]
  - Cholelithiasis [Unknown]
  - Pain [Unknown]
